FAERS Safety Report 10047647 (Version 1)
Quarter: 2014Q1

REPORT INFORMATION
  Report Type: Spontaneous
  Country: US (occurrence: US)
  Receive Date: 20140331
  Receipt Date: 20140331
  Transmission Date: 20141002
  Serious: Yes (Other)
  Sender: FDA-Public Use
  Company Number: US-PFIZER INC-2014086346

PATIENT
  Age: 58 Year
  Sex: Male
  Weight: 113.4 kg

DRUGS (3)
  1. NEURONTIN [Suspect]
     Indication: POST HERPETIC NEURALGIA
     Dosage: 300 MG, 2X/DAY
     Route: 048
     Dates: end: 201403
  2. VICODIN [Concomitant]
     Dosage: UNK
  3. PERCOCET [Concomitant]
     Dosage: UNK

REACTIONS (1)
  - Spinal cord disorder [Unknown]
